FAERS Safety Report 26093581 (Version 1)
Quarter: 2025Q4

REPORT INFORMATION
  Report Type: Other
  Country: EU (occurrence: EU)
  Receive Date: 20251126
  Receipt Date: 20251126
  Transmission Date: 20260117
  Serious: Yes (Congenital Anomaly, Other)
  Sender: DUCHESNAY
  Company Number: None

PATIENT

DRUGS (1)
  1. DOXYLAMINE SUCCINATE\PYRIDOXINE HYDROCHLORIDE [Suspect]
     Active Substance: DOXYLAMINE SUCCINATE\PYRIDOXINE HYDROCHLORIDE
     Indication: Foetal exposure during pregnancy
     Dosage: ACCORDING TO WRITTEN INSTRUCTIONS
     Route: 064
     Dates: start: 20250820, end: 20251010

REACTIONS (1)
  - Spina bifida [Not Recovered/Not Resolved]

NARRATIVE: CASE EVENT DATE: 20251008
